FAERS Safety Report 10056729 (Version 3)
Quarter: 2014Q2

REPORT INFORMATION
  Report Type: Report from Study
  Country: TW (occurrence: TW)
  Receive Date: 20140403
  Receipt Date: 20140415
  Transmission Date: 20141212
  Serious: Yes (Hospitalization)
  Sender: FDA-Public Use
  Company Number: TW-SA-2014SA037188

PATIENT
  Age: 66 Year
  Sex: Male
  Weight: 160.3 kg

DRUGS (19)
  1. CLOPIDOGREL BISULFATE [Suspect]
     Indication: ACUTE CORONARY SYNDROME
     Route: 065
     Dates: start: 20140123
  2. ASPIRIN [Suspect]
     Indication: PRODUCT USED FOR UNKNOWN INDICATION
     Route: 065
     Dates: start: 20140122
  3. CHLORPHENIRAMINE [Concomitant]
     Dosage: STRENGHT: 5MG/1ML?DOSE: 1 AMP IVA STAT
     Dates: start: 20140319, end: 20140320
  4. LORAZEPAM [Concomitant]
     Route: 048
     Dates: start: 20140319, end: 20140320
  5. HEPARIN SODIUM [Concomitant]
     Dates: start: 20140319, end: 20140320
  6. SODIUM CHLORIDE [Concomitant]
     Dosage: STRENGHT: 0.45%
     Dates: start: 20140319, end: 20140319
  7. SODIUM CHLORIDE [Concomitant]
     Dosage: STRENGTH: 0.9%
     Dates: start: 20140320, end: 20140321
  8. HUMULIN R [Concomitant]
     Dates: start: 20140319, end: 20140320
  9. DEXTROSE INFUSION FLUID 5% [Concomitant]
     Dates: start: 20140319, end: 20140320
  10. NITROSTAT [Concomitant]
     Dates: start: 20140319, end: 20140321
  11. ISMO [Concomitant]
     Route: 048
     Dates: start: 20140319, end: 20140321
  12. DILATREND [Concomitant]
     Route: 048
     Dates: start: 20140319, end: 20140321
  13. LIPITOR [Concomitant]
     Route: 048
     Dates: start: 20140319, end: 20140321
  14. FLUIMUCIL [Concomitant]
     Route: 048
     Dates: start: 20140320, end: 20140321
  15. FLUIMUCIL [Concomitant]
     Route: 048
     Dates: start: 20140320, end: 20140321
  16. FLUIMUCIL [Concomitant]
     Route: 048
     Dates: start: 20140321, end: 20140323
  17. GLUCOPHAGE [Concomitant]
     Route: 048
     Dates: start: 20140320, end: 20140321
  18. AMARYL [Concomitant]
     Route: 048
     Dates: start: 20140320, end: 20140321
  19. DEPYRETIN [Concomitant]
     Route: 048
     Dates: start: 20140321

REACTIONS (2)
  - Arteriosclerosis coronary artery [Recovered/Resolved]
  - Acute myocardial infarction [Recovered/Resolved]
